FAERS Safety Report 5884266-7 (Version None)
Quarter: 2008Q3

REPORT INFORMATION
  Report Type: 
  Country: None (occurrence: None)
  Receive Date: 20080915
  Receipt Date: 20080905
  Transmission Date: 20090109
  Serious: Yes (Hospitalization, Other)
  Sender: FDA-Public Use
  Company Number: US-ABBOTT-08P-163-0471757-00

PATIENT
  Age: 11 Year
  Sex: Female

DRUGS (2)
  1. VALPROIC ACID [Suspect]
     Indication: INTENTIONAL DRUG MISUSE
     Dosage: NOT REPORTED
  2. GABAPENTIN [Concomitant]
     Indication: INTENTIONAL DRUG MISUSE
     Dosage: NOT REPORTED

REACTIONS (3)
  - COMA [None]
  - HYPERNATRAEMIA [None]
  - INTENTIONAL DRUG MISUSE [None]
